FAERS Safety Report 19081966 (Version 1)
Quarter: 2021Q2

REPORT INFORMATION
  Report Type: Report from Study
  Country: None (occurrence: CO)
  Receive Date: 20210401
  Receipt Date: 20210401
  Transmission Date: 20210717
  Serious: Yes (Other)
  Sender: FDA-Public Use
  Company Number: CO-ABBVIE-21K-036-3840109-00

PATIENT
  Age: 39 Year
  Sex: Female
  Weight: 86 kg

DRUGS (2)
  1. ZEMPLAR [Suspect]
     Active Substance: PARICALCITOL
     Indication: HYPERPARATHYROIDISM SECONDARY
     Dosage: POSTDYALISIS
     Route: 042
     Dates: start: 20170303
  2. ZEMPLAR [Suspect]
     Active Substance: PARICALCITOL
     Indication: CHRONIC KIDNEY DISEASE

REACTIONS (2)
  - Visual impairment [Recovering/Resolving]
  - Cataract [Recovering/Resolving]

NARRATIVE: CASE EVENT DATE: 202011
